FAERS Safety Report 5449479-7 (Version None)
Quarter: 2007Q3

REPORT INFORMATION
  Report Type: 
  Country: None (occurrence: None)
  Receive Date: 20070907
  Receipt Date: 20070831
  Transmission Date: 20080115
  Serious: Yes (Life-Threatening, Hospitalization, Disabling)
  Sender: FDA-Public Use
  Company Number: 2007SP017692

PATIENT
  Age: 60 Year
  Sex: Female

DRUGS (5)
  1. INTEGRILIN [Suspect]
     Indication: MYOCARDIAL INFARCTION
     Dosage: ; IV
     Route: 042
     Dates: start: 20060901, end: 20060901
  2. KARDEGIC [Concomitant]
  3. HEPARIN [Concomitant]
  4. ATENOLOL [Concomitant]
  5. PLAVIX [Concomitant]

REACTIONS (4)
  - ACUTE MYOCARDIAL INFARCTION [None]
  - ACUTE RESPIRATORY DISTRESS SYNDROME [None]
  - PULMONARY ALVEOLAR HAEMORRHAGE [None]
  - PULMONARY HAEMORRHAGE [None]
